FAERS Safety Report 6814132-1 (Version None)
Quarter: 2010Q3

REPORT INFORMATION
  Report Type: 
  Country: None (occurrence: None)
  Receive Date: 20100702
  Receipt Date: 20100414
  Transmission Date: 20110219
  Serious: No
  Sender: FDA-Public Use
  Company Number: A0845461A

PATIENT
  Age: 90 Year
  Sex: Female

DRUGS (16)
  1. ADVAIR DISKUS 100/50 [Suspect]
     Dosage: 2PUFF TWICE PER DAY
     Route: 055
  2. VITAMIN C [Concomitant]
  3. CALCIUM CARBONATE [Concomitant]
  4. ASPIRIN [Concomitant]
  5. MAGNESIUM [Concomitant]
  6. HYDROCHLOROTHIAZIDE [Concomitant]
  7. SYNTHROID [Concomitant]
  8. MICRO-K [Concomitant]
  9. ACIPHEX [Concomitant]
  10. SIMVASTATIN [Concomitant]
  11. NORVASC [Concomitant]
  12. BETAPACE [Concomitant]
  13. LISINOPRIL [Concomitant]
  14. ACTONEL [Concomitant]
  15. AMBIEN [Concomitant]
  16. ACETAMINOPHEN [Concomitant]

REACTIONS (2)
  - BURNING SENSATION [None]
  - PRODUCT QUALITY ISSUE [None]
